FAERS Safety Report 13900355 (Version 2)
Quarter: 2017Q3

REPORT INFORMATION
  Report Type: Spontaneous
  Country: BR (occurrence: BR)
  Receive Date: 20170824
  Receipt Date: 20170920
  Transmission Date: 20171127
  Serious: Yes (Other)
  Sender: FDA-Public Use
  Company Number: PHHY2017BR123827

PATIENT
  Age: 49 Year
  Sex: Male
  Weight: 70 kg

DRUGS (1)
  1. SERTRALINE [Suspect]
     Active Substance: SERTRALINE HYDROCHLORIDE
     Indication: DEPRESSION
     Dosage: 1 DF, QID
     Route: 048

REACTIONS (3)
  - Diabetes mellitus [Unknown]
  - Metastases to liver [Unknown]
  - Pancreatic neuroendocrine tumour [Recovering/Resolving]

NARRATIVE: CASE EVENT DATE: 201701
